FAERS Safety Report 6491828-5 (Version None)
Quarter: 2009Q4

REPORT INFORMATION
  Report Type: 
  Country: None (occurrence: None)
  Receive Date: 20091210
  Receipt Date: 20091130
  Transmission Date: 20100525
  Serious: Yes (Other)
  Sender: FDA-Public Use
  Company Number: 232180J09USA

PATIENT
  Age: 58 Year
  Sex: Female
  Weight: 91 kg

DRUGS (5)
  1. REBIF [Suspect]
     Indication: MULTIPLE SCLEROSIS
     Dosage: 44 MCG, 3 IN 1 WEEKS, SUBCUTANEOUS
     Route: 058
     Dates: start: 20080719
  2. STEROIDS (CORTICOSTEROIDS) [Concomitant]
  3. METOCLOPRAMIDE (METOCLOPRAMIDE /0041901/) [Concomitant]
  4. LISINOPRIL WITH HYDROCHLOROTHIAZIDE (PRINZIDE /00977901/) [Concomitant]
  5. HYDROCODONE (HYDROCODONE) [Concomitant]

REACTIONS (4)
  - BLOOD CHOLESTEROL INCREASED [None]
  - CEREBROVASCULAR ACCIDENT [None]
  - MIGRAINE [None]
  - STRESS [None]
